FAERS Safety Report 11723455 (Version 1)
Quarter: 2015Q4

REPORT INFORMATION
  Report Type: Spontaneous
  Country: US (occurrence: None)
  Receive Date: 20151110
  Receipt Date: 20151110
  Transmission Date: 20160304
  Serious: No
  Sender: FDA-Public Use
  Company Number: None

PATIENT
  Age: 62 Year
  Sex: Female
  Weight: 63.5 kg

DRUGS (9)
  1. POTASSIUM [Suspect]
     Active Substance: POTASSIUM
  2. QVAR [Concomitant]
     Active Substance: BECLOMETHASONE DIPROPIONATE
  3. OMEGA 3 [Concomitant]
     Active Substance: OMEGA-3 FATTY ACIDS
  4. VENTOLIN [Concomitant]
     Active Substance: ALBUTEROL SULFATE
  5. LEVOTHYROXIN [Concomitant]
     Active Substance: LEVOTHYROXINE
  6. ATORVASTATIN 20MG [Suspect]
     Active Substance: ATORVASTATIN
     Indication: BLOOD CHOLESTEROL
     Route: 048
  7. ALPRAZOLAM. [Concomitant]
     Active Substance: ALPRAZOLAM
  8. CALCIUM [Suspect]
     Active Substance: CALCIUM
  9. STOOL SOFTNER [Concomitant]

REACTIONS (7)
  - Nausea [None]
  - Hyperhidrosis [None]
  - Dizziness [None]
  - Pruritus [None]
  - Burning sensation [None]
  - Syncope [None]
  - Blood glucose abnormal [None]

NARRATIVE: CASE EVENT DATE: 20150601
